FAERS Safety Report 6637701-0 (Version None)
Quarter: 2010Q1

REPORT INFORMATION
  Report Type: 
  Country: None (occurrence: None)
  Receive Date: 20100301
  Receipt Date: 20090305
  Transmission Date: 20100710
  Serious: Yes (Hospitalization)
  Sender: FDA-Public Use
  Company Number: RB-4702-2008

PATIENT
  Age: 55 Year
  Sex: Female

DRUGS (1)
  1. SUBOXONE [Suspect]
     Indication: PAIN
     Dosage: 12 MG SUBLINGUAL
     Route: 060
     Dates: start: 20081002

REACTIONS (2)
  - AGITATION [None]
  - DRUG WITHDRAWAL SYNDROME [None]
